FAERS Safety Report 13574833 (Version 1)
Quarter: 2017Q2

REPORT INFORMATION
  Report Type: Spontaneous
  Country: US (occurrence: US)
  Receive Date: 20170523
  Receipt Date: 20170523
  Transmission Date: 20170830
  Serious: No
  Sender: FDA-Public Use
  Company Number: US-ACORDA-ACO_124403_2016

PATIENT
  Age: 55 Year
  Sex: Female

DRUGS (1)
  1. QUTENZA [Suspect]
     Active Substance: CAPSAICIN
     Indication: PRODUCT USED FOR UNKNOWN INDICATION
     Dosage: 8 %, UNK
     Route: 065

REACTIONS (4)
  - Occupational exposure to product [Unknown]
  - Glossitis [Recovered/Resolved]
  - Throat irritation [Recovered/Resolved]
  - Paraesthesia oral [Unknown]

NARRATIVE: CASE EVENT DATE: 2014
